FAERS Safety Report 23564521 (Version 1)
Quarter: 2024Q1

REPORT INFORMATION
  Report Type: Spontaneous
  Country: US (occurrence: US)
  Receive Date: 20240226
  Receipt Date: 20240226
  Transmission Date: 20240410
  Serious: Yes (Hospitalization, Other)
  Sender: FDA-Public Use
  Company Number: US-JUBILANT CADISTA PHARMACEUTICALS-2024US000241

PATIENT
  Age: 64 Year
  Sex: Male

DRUGS (4)
  1. LEVETIRACETAM [Suspect]
     Active Substance: LEVETIRACETAM
     Indication: Seizure
     Dosage: LOADED WITH 4,500 MG INTRAVENOUS LEVETIRACETAM
     Route: 042
  2. LEVETIRACETAM [Suspect]
     Active Substance: LEVETIRACETAM
     Dosage: 1 G, 2 TIMES PER DAY
  3. VALIUM [Concomitant]
     Active Substance: DIAZEPAM
     Dosage: 10 MG INTRAVENOUSLY BEFORE ARRIVAL AT THE EMERGENCY DEPARTMENT
     Route: 042
  4. lorazepam and midazolam [Concomitant]

REACTIONS (1)
  - Rhabdomyolysis [Recovering/Resolving]
